FAERS Safety Report 5750838-3 (Version None)
Quarter: 2008Q2

REPORT INFORMATION
  Report Type: 
  Country: None (occurrence: None)
  Receive Date: 20080528
  Receipt Date: 20080523
  Transmission Date: 20081010
  Serious: Yes (Death)
  Sender: FDA-Public Use
  Company Number: B0511124A

PATIENT
  Age: 56 Year
  Sex: Male

DRUGS (12)
  1. ZEFIX [Suspect]
     Indication: HEPATIC CIRRHOSIS
     Dosage: 100MG PER DAY
     Route: 048
     Dates: start: 20060227, end: 20080126
  2. HEPSERA [Suspect]
     Indication: HEPATIC CIRRHOSIS
     Route: 048
     Dates: start: 20071214, end: 20080126
  3. URSO 250 [Concomitant]
     Indication: HEPATIC CIRRHOSIS
     Route: 048
  4. ALDACTONE [Concomitant]
     Indication: HEPATIC CIRRHOSIS
     Route: 048
  5. FUROSEMIDE [Concomitant]
     Indication: HEPATIC CIRRHOSIS
     Route: 048
  6. LIVACT [Concomitant]
     Indication: HEPATIC CIRRHOSIS
     Route: 048
  7. TAURINE [Concomitant]
     Indication: HEPATIC CIRRHOSIS
     Route: 048
  8. MAGLAX [Concomitant]
     Route: 048
  9. CALORYL [Concomitant]
     Indication: HEPATIC CIRRHOSIS
     Route: 048
  10. NEO-MINOPHAGEN-C [Concomitant]
     Indication: HEPATIC CIRRHOSIS
     Route: 048
  11. HEPAN ED [Concomitant]
     Indication: HEPATIC CIRRHOSIS
     Route: 048
  12. PARIET [Concomitant]
     Route: 048

REACTIONS (3)
  - DRUG RESISTANCE [None]
  - HEPATIC FAILURE [None]
  - HEPATITIS B [None]
